FAERS Safety Report 7560019-9 (Version None)
Quarter: 2011Q2

REPORT INFORMATION
  Report Type: 
  Country: None (occurrence: None)
  Receive Date: 20110621
  Receipt Date: 20110615
  Transmission Date: 20111010
  Serious: Yes (Death)
  Sender: FDA-Public Use
  Company Number: PHFR2010GB05000

PATIENT
  Sex: Male

DRUGS (4)
  1. CLOZAPINE [Suspect]
     Indication: SCHIZOPHRENIA
     Dosage: 400 MG, DAILY
     Route: 048
     Dates: start: 20060323
  2. METHADONE HCL [Concomitant]
     Dosage: 30 ML, DAILY
     Route: 048
  3. SERTRALINE [Concomitant]
     Dosage: 150 MG, DAILY
     Route: 048
  4. ZOPICLONE [Concomitant]
     Dosage: 7.5 MG, DAILY
     Route: 048

REACTIONS (2)
  - COR PULMONALE [None]
  - CHRONIC OBSTRUCTIVE PULMONARY DISEASE [None]
